FAERS Safety Report 7348073-0 (Version None)
Quarter: 2011Q1

REPORT INFORMATION
  Report Type: 
  Country: None (occurrence: None)
  Receive Date: 20110311
  Receipt Date: 20110309
  Transmission Date: 20110831
  Serious: Yes (Other)
  Sender: FDA-Public Use
  Company Number: US-PFIZER INC-2011053351

PATIENT
  Sex: Male
  Weight: 58.96 kg

DRUGS (4)
  1. METOPROLOL [Concomitant]
     Indication: HYPERTENSION
     Dosage: 4.5 MG, 1X/DAY
     Route: 048
  2. PLAVIX [Concomitant]
     Indication: COAGULOPATHY
     Dosage: 75 MG, 1X/DAY
     Route: 048
  3. ACETYLSALICYLIC ACID [Concomitant]
     Indication: ANTICOAGULANT THERAPY
     Dosage: 81 MG, 1X/DAY
     Route: 048
  4. LIPITOR [Suspect]
     Indication: BLOOD CHOLESTEROL ABNORMAL
     Dosage: 10 MG, 1X/DAY
     Route: 048
     Dates: start: 20050101

REACTIONS (1)
  - COELIAC DISEASE [None]
